FAERS Safety Report 4520742-7 (Version None)
Quarter: 2004Q4

REPORT INFORMATION
  Report Type: 
  Country: None (occurrence: None)
  Receive Date: 20041207
  Receipt Date: 20041123
  Transmission Date: 20050328
  Serious: Yes (Hospitalization)
  Sender: FDA-Public Use
  Company Number: GB-MERCK-0412GBR00001

PATIENT
  Age: 7 Year
  Sex: Female

DRUGS (6)
  1. COSMEGEN [Suspect]
     Indication: RHABDOMYOSARCOMA
     Route: 051
  2. VINCRISTINE SULFATE [Suspect]
     Indication: RHABDOMYOSARCOMA
     Route: 065
  3. IFOSFAMIDE [Suspect]
     Indication: RHABDOMYOSARCOMA
     Route: 065
  4. CARBOPLATIN [Suspect]
     Indication: RHABDOMYOSARCOMA
     Route: 065
  5. EPIRUBICIN HYDROCHLORIDE [Suspect]
     Indication: RHABDOMYOSARCOMA
     Route: 065
  6. ETOPOSIDE [Suspect]
     Indication: RHABDOMYOSARCOMA
     Route: 065

REACTIONS (9)
  - DIARRHOEA [None]
  - FEBRILE NEUTROPENIA [None]
  - GASTROINTESTINAL DISORDER [None]
  - GROWTH RETARDATION [None]
  - LYMPH NODE ABSCESS [None]
  - NEUTROPENIA [None]
  - RASH MACULO-PAPULAR [None]
  - SEPTIC SHOCK [None]
  - VASCULITIS [None]
